FAERS Safety Report 8502243-4 (Version None)
Quarter: 2012Q3

REPORT INFORMATION
  Report Type: 
  Country: None (occurrence: None)
  Receive Date: 20120711
  Receipt Date: 20120706
  Transmission Date: 20120928
  Serious: Yes (Other)
  Sender: FDA-Public Use
  Company Number: PHHY2012US058191

PATIENT
  Age: 65 Year
  Sex: Female

DRUGS (1)
  1. HALOPERIDOL [Suspect]
     Indication: MULTIPLE SCLEROSIS RELAPSE
     Dosage: 19 MG, TOTAL IN 24 HOURS
     Route: 042

REACTIONS (12)
  - NEUROLEPTIC MALIGNANT SYNDROME [None]
  - DEPRESSIVE SYMPTOM [None]
  - MYOCLONUS [None]
  - HALLUCINATION, VISUAL [None]
  - MUSCLE RIGIDITY [None]
  - AMNESIA [None]
  - PYREXIA [None]
  - DEPRESSION [None]
  - DEHYDRATION [None]
  - BRADYKINESIA [None]
  - RENAL FAILURE ACUTE [None]
  - DEMENTIA WITH LEWY BODIES [None]
